FAERS Safety Report 5811409-3 (Version None)
Quarter: 2008Q3

REPORT INFORMATION
  Report Type: 
  Country: None (occurrence: None)
  Receive Date: 20080715
  Receipt Date: 20080715
  Transmission Date: 20090109
  Serious: No
  Sender: FDA-Public Use
  Company Number: None

PATIENT

DRUGS (1)
  1. LOVENOX [Suspect]
     Dosage: 1-1.5 MG/KG SQ
     Route: 058
     Dates: start: 20070301, end: 20070630

REACTIONS (3)
  - ACCIDENTAL NEEDLE STICK [None]
  - MEDICATION ERROR [None]
  - PHARMACEUTICAL PRODUCT COMPLAINT [None]
